FAERS Safety Report 9465926 (Version 1)
Quarter: 2013Q3

REPORT INFORMATION
  Report Type: Spontaneous
  Country: US (occurrence: US)
  Receive Date: 20130820
  Receipt Date: 20130820
  Transmission Date: 20140515
  Serious: No
  Sender: FDA-Public Use
  Company Number: US-009507513-1307USA016231

PATIENT
  Age: 31 Year
  Sex: Female
  Weight: 88.89 kg

DRUGS (4)
  1. NEXPLANON [Suspect]
     Indication: MENORRHAGIA
     Dosage: 68 MG, 1 ROD
     Route: 059
     Dates: start: 20121128, end: 20130726
  2. CELEXA [Concomitant]
  3. VALIUM [Concomitant]
  4. DESMOPRESSIN [Concomitant]

REACTIONS (5)
  - Anaemia [Unknown]
  - Menstruation irregular [Unknown]
  - Device kink [Unknown]
  - Device breakage [Unknown]
  - Off label use [Unknown]
